FAERS Safety Report 11858092 (Version 1)
Quarter: 2015Q4

REPORT INFORMATION
  Report Type: Spontaneous
  Country: CH (occurrence: CH)
  Receive Date: 20151222
  Receipt Date: 20151222
  Transmission Date: 20160305
  Serious: No
  Sender: FDA-Public Use
  Company Number: CH-JNJFOC-20151217873

PATIENT

DRUGS (1)
  1. DUROGESIC [Suspect]
     Active Substance: FENTANYL
     Indication: ARTHRALGIA
     Route: 062

REACTIONS (3)
  - Drug prescribing error [Unknown]
  - Drug dose omission [Unknown]
  - Drug administration error [Unknown]
